FAERS Safety Report 12988930 (Version 2)
Quarter: 2016Q4

REPORT INFORMATION
  Report Type: Spontaneous
  Country: TR (occurrence: TR)
  Receive Date: 20161201
  Receipt Date: 20161205
  Transmission Date: 20170207
  Serious: Yes (Other)
  Sender: FDA-Public Use
  Company Number: TR-009507513-1611TUR012545

PATIENT
  Age: 82 Year
  Sex: Female

DRUGS (4)
  1. PROGRAF [Concomitant]
     Active Substance: TACROLIMUS\TACROLIMUS ANHYDROUS
     Indication: RENAL TRANSPLANT
     Dosage: 3X2.5
     Route: 048
  2. DELTACORTRIL [Concomitant]
     Active Substance: PREDNISOLONE
     Indication: RENAL TRANSPLANT
     Dosage: 1X1
     Route: 048
  3. DILTIZEM [Concomitant]
     Dosage: 2X30 MG
  4. ERTAPENEM SODIUM [Suspect]
     Active Substance: ERTAPENEM SODIUM
     Indication: PYELONEPHRITIS ACUTE
     Dosage: 500 MG, QD
     Route: 042
     Dates: start: 20161028, end: 20161101

REACTIONS (3)
  - Epilepsy [Recovered/Resolved]
  - Seizure [Recovered/Resolved]
  - Generalised tonic-clonic seizure [Recovered/Resolved]

NARRATIVE: CASE EVENT DATE: 20161031
